FAERS Safety Report 24322197 (Version 1)
Quarter: 2024Q3

REPORT INFORMATION
  Report Type: Spontaneous
  Country: FR (occurrence: FR)
  Receive Date: 20240916
  Receipt Date: 20240916
  Transmission Date: 20241017
  Serious: Yes (Other)
  Sender: DR REDDYS
  Company Number: FR-GERMAN-SPO/FRA/24/0013205

PATIENT
  Age: 66 Year
  Sex: Female

DRUGS (20)
  1. CYCLOPHOSPHAMIDE [Suspect]
     Active Substance: CYCLOPHOSPHAMIDE
     Indication: Grey zone lymphoma
     Dosage: 3 CYCLES
  2. CYCLOPHOSPHAMIDE [Suspect]
     Active Substance: CYCLOPHOSPHAMIDE
     Indication: Metastases to lymph nodes
  3. CYCLOPHOSPHAMIDE [Suspect]
     Active Substance: CYCLOPHOSPHAMIDE
     Indication: Bone lesion
  4. CYCLOPHOSPHAMIDE [Suspect]
     Active Substance: CYCLOPHOSPHAMIDE
     Indication: Metastases to spine
  5. RITUXIMAB [Suspect]
     Active Substance: RITUXIMAB
     Indication: Grey zone lymphoma
     Dosage: 2 CYCLES
  6. RITUXIMAB [Suspect]
     Active Substance: RITUXIMAB
     Indication: Metastases to lymph nodes
  7. RITUXIMAB [Suspect]
     Active Substance: RITUXIMAB
     Indication: Bone lesion
  8. RITUXIMAB [Suspect]
     Active Substance: RITUXIMAB
     Indication: Metastases to spine
  9. DOXORUBICIN [Suspect]
     Active Substance: DOXORUBICIN
     Indication: Grey zone lymphoma
     Dosage: 2 CYCLES
  10. DOXORUBICIN [Suspect]
     Active Substance: DOXORUBICIN
     Indication: Metastases to lymph nodes
  11. DOXORUBICIN [Suspect]
     Active Substance: DOXORUBICIN
     Indication: Bone lesion
  12. DOXORUBICIN [Suspect]
     Active Substance: DOXORUBICIN
     Indication: Metastases to spine
  13. VINCRISTINE [Suspect]
     Active Substance: VINCRISTINE
     Indication: Grey zone lymphoma
     Dosage: 3 CYCLES
  14. VINCRISTINE [Suspect]
     Active Substance: VINCRISTINE
     Indication: Metastases to lymph nodes
  15. VINCRISTINE [Suspect]
     Active Substance: VINCRISTINE
     Indication: Bone lesion
  16. VINCRISTINE [Suspect]
     Active Substance: VINCRISTINE
     Indication: Metastases to spine
  17. PREDNISONE [Suspect]
     Active Substance: PREDNISONE
     Indication: Grey zone lymphoma
     Dosage: 3 CYCLES
  18. PREDNISONE [Suspect]
     Active Substance: PREDNISONE
     Indication: Metastases to lymph nodes
  19. PREDNISONE [Suspect]
     Active Substance: PREDNISONE
     Indication: Bone lesion
  20. PREDNISONE [Suspect]
     Active Substance: PREDNISONE
     Indication: Metastases to spine

REACTIONS (2)
  - Malignant neoplasm progression [Unknown]
  - Drug ineffective for unapproved indication [Unknown]
